FAERS Safety Report 15585367 (Version 1)
Quarter: 2018Q4

REPORT INFORMATION
  Report Type: Spontaneous
  Country: US (occurrence: US)
  Receive Date: 20181105
  Receipt Date: 20181105
  Transmission Date: 20190205
  Serious: No
  Sender: FDA-Public Use
  Company Number: US-TEVA-2018-US-972723

PATIENT
  Age: 33 Year
  Sex: Female

DRUGS (6)
  1. CINACALCET. [Suspect]
     Active Substance: CINACALCET
     Indication: HYPERCALCAEMIA
     Dosage: 60 MILLIGRAM DAILY;
     Route: 048
  2. CINACALCET. [Suspect]
     Active Substance: CINACALCET
     Indication: HYPERCALCAEMIA
     Route: 048
  3. PREDNISONE. [Suspect]
     Active Substance: PREDNISONE
     Indication: HYPERCALCAEMIA
     Dosage: 20 MILLIGRAM DAILY;
     Route: 048
  4. PREDNISONE. [Suspect]
     Active Substance: PREDNISONE
     Dosage: 30 MILLIGRAM DAILY;
     Route: 048
  5. CALCITONIN [Suspect]
     Active Substance: CALCITONIN
     Indication: HYPERCALCAEMIA
     Dosage: FINAL DOSE
     Route: 058
  6. SALINE [Suspect]
     Active Substance: SODIUM CHLORIDE
     Indication: HYPERCALCAEMIA
     Route: 042

REACTIONS (3)
  - Maternal exposure during pregnancy [Unknown]
  - Abortion induced [Unknown]
  - Off label use [Unknown]
